FAERS Safety Report 7195542-2 (Version None)
Quarter: 2010Q4

REPORT INFORMATION
  Report Type: 
  Country: None (occurrence: None)
  Receive Date: 20101223
  Receipt Date: 20101005
  Transmission Date: 20110411
  Serious: No
  Sender: FDA-Public Use
  Company Number: US-AMGEN-KDL443088

PATIENT

DRUGS (12)
  1. ENBREL [Suspect]
     Indication: PRODUCT USED FOR UNKNOWN INDICATION
     Dosage: 50 MG, QWK
     Route: 058
  2. PROMETRIUM [Concomitant]
     Dosage: 100 MG, UNK
  3. PREDNISONE [Concomitant]
     Dosage: 5 MG, UNK
  4. CHLOROTHIAZIDE [Concomitant]
     Dosage: 500 MG, UNK
  5. LEVOTHYROXINE SODIUM [Concomitant]
     Dosage: 88 A?G, UNK
  6. ESTRADIOL [Concomitant]
     Dosage: 2 MG, UNK
  7. MULTI-VITAMINS [Concomitant]
     Dosage: UNK UNK, UNK
  8. MELOXICAM [Concomitant]
     Dosage: 7.5 MG, UNK
  9. LORATADINE [Concomitant]
     Dosage: 10 MG, UNK
  10. FISH OIL [Concomitant]
     Dosage: UNK UNK, UNK
  11. ASPIRIN [Concomitant]
     Dosage: 81 MG, UNK
  12. CALCIUM WITH VITAMIN D [Concomitant]
     Dosage: UNK UNK, UNK

REACTIONS (1)
  - RASH [None]
